FAERS Safety Report 23514080 (Version 1)
Quarter: 2024Q1

REPORT INFORMATION
  Report Type: Spontaneous
  Country: US (occurrence: None)
  Receive Date: 20240211
  Receipt Date: 20240211
  Transmission Date: 20240410
  Serious: Yes (Life-Threatening, Hospitalization, Disabling, Other)
  Sender: FDA-Public Use
  Company Number: None

PATIENT
  Age: 58 Year
  Sex: Male
  Weight: 97.2 kg

DRUGS (7)
  1. JARDIANCE [Suspect]
     Active Substance: EMPAGLIFLOZIN
     Indication: Type 2 diabetes mellitus
     Dosage: OTHER QUANTITY : 1 TABLET(S);?FREQUENCY : TWICE A DAY;?
     Route: 048
     Dates: start: 20200501
  2. JARDIANCE [Concomitant]
  3. METFORMIN [Concomitant]
  4. Dialzitium [Concomitant]
  5. ATORVASTATIN [Concomitant]
  6. ELIQUIS [Concomitant]
  7. GLIMEPIRIDE [Concomitant]
     Active Substance: GLIMEPIRIDE

REACTIONS (5)
  - Prescribed overdose [None]
  - Off label use [None]
  - Ketoacidosis [None]
  - Pancreatic carcinoma metastatic [None]
  - Product prescribing issue [None]

NARRATIVE: CASE EVENT DATE: 20220429
